FAERS Safety Report 7048409-4 (Version None)
Quarter: 2010Q4

REPORT INFORMATION
  Report Type: 
  Country: None (occurrence: None)
  Receive Date: 20101014
  Receipt Date: 20101014
  Transmission Date: 20110411
  Serious: No
  Sender: FDA-Public Use
  Company Number: None

PATIENT
  Age: 50 Year
  Sex: Female
  Weight: 47.6277 kg

DRUGS (3)
  1. OXYCONTIN [Suspect]
     Indication: ARTHRITIS
     Dosage: 60 2
     Dates: start: 20100921, end: 20101013
  2. OXYCONTIN [Suspect]
     Indication: INJURY
     Dosage: 60 2
     Dates: start: 20100921, end: 20101013
  3. OXYCONTIN [Suspect]
     Indication: SPINAL DISORDER
     Dosage: 60 2
     Dates: start: 20100921, end: 20101013

REACTIONS (7)
  - ABDOMINAL PAIN UPPER [None]
  - CONSTIPATION [None]
  - DRUG INEFFECTIVE [None]
  - HEADACHE [None]
  - NAUSEA [None]
  - PRODUCT FORMULATION ISSUE [None]
  - VOMITING [None]
